FAERS Safety Report 5633266-0 (Version None)
Quarter: 2008Q1

REPORT INFORMATION
  Report Type: 
  Country: None (occurrence: None)
  Receive Date: 20080221
  Receipt Date: 20080214
  Transmission Date: 20080703
  Serious: Yes (Hospitalization)
  Sender: FDA-Public Use
  Company Number: JP-MERCK-0802USA01276

PATIENT
  Age: 81 Year
  Sex: Male
  Weight: 71 kg

DRUGS (6)
  1. HYZAAR [Suspect]
     Indication: HYPERTENSION
     Route: 048
     Dates: start: 20071020, end: 20080205
  2. MICARDIS [Concomitant]
     Indication: HYPERTENSION
     Route: 048
     Dates: start: 20071019
  3. ADALAT [Concomitant]
     Indication: HYPERTENSION
     Route: 048
  4. GLUFAST [Concomitant]
     Indication: DIABETES MELLITUS
     Route: 048
     Dates: start: 20071020
  5. SELECTOL [Concomitant]
     Indication: HYPERTENSION
     Route: 048
  6. BASEN [Concomitant]
     Indication: DIABETES MELLITUS
     Route: 048
     Dates: start: 20080115

REACTIONS (1)
  - INTERSTITIAL LUNG DISEASE [None]
